FAERS Safety Report 4278495-6 (Version None)
Quarter: 2004Q1

REPORT INFORMATION
  Report Type: 
  Country: None (occurrence: None)
  Receive Date: 20040102
  Receipt Date: 20031106
  Transmission Date: 20041129
  Serious: No
  Sender: FDA-Public Use
  Company Number: BLOC000314

PATIENT
  Age: 35 Year
  Sex: Female

DRUGS (2)
  1. MYOBLOC [Suspect]
     Indication: DYSTONIA
     Dosage: 10,000 U INTRAMUSCULAR
     Route: 030
     Dates: start: 20010724, end: 20010724
  2. .. [Concomitant]

REACTIONS (5)
  - EPISTAXIS [None]
  - INFLUENZA LIKE ILLNESS [None]
  - INJECTION SITE PAIN [None]
  - NECK PAIN [None]
  - ODYNOPHAGIA [None]
